FAERS Safety Report 24362502 (Version 1)
Quarter: 2024Q3

REPORT INFORMATION
  Report Type: Spontaneous
  Country: CN (occurrence: CN)
  Receive Date: 20240925
  Receipt Date: 20240925
  Transmission Date: 20241017
  Serious: Yes (Other)
  Sender: AFAXYS
  Company Number: CN-AFAXYS PHARMA, LLC-2024AFX00011

PATIENT
  Sex: Male

DRUGS (7)
  1. LIDOCAINE [Suspect]
     Active Substance: LIDOCAINE
     Indication: Anaesthesia
     Dosage: 10 MINUTE IV INFUSION AT 1.5 MG/KG
     Route: 042
  2. CISATRACURIUM [Concomitant]
     Active Substance: CISATRACURIUM
     Indication: Anaesthesia
     Dosage: 0.2 MG/KG; INTERMITTENT BOLUS INJECTIONS
  3. SUFENTANIL [Concomitant]
     Active Substance: SUFENTANIL
     Indication: Anaesthesia
     Dosage: 0.3-0.5 MG/KG; INTERMITTENT BOLUS INJECTION
  4. PROPOFOL [Concomitant]
     Active Substance: PROPOFOL
     Indication: Anaesthesia
     Dosage: 1.5-3.0 MG/KG
  5. SEVOFLURANE [Concomitant]
     Active Substance: SEVOFLURANE
     Indication: Anaesthesia
     Dosage: CONTINUOUS INHALATION OF 1-3%
  6. EPHEDRINE [Concomitant]
     Active Substance: EPHEDRINE
     Indication: Blood pressure management
  7. ATROPINE [Concomitant]
     Active Substance: ATROPINE
     Indication: Blood pressure management

REACTIONS (1)
  - Delirium [Recovering/Resolving]
